FAERS Safety Report 16112776 (Version 1)
Quarter: 2019Q1

REPORT INFORMATION
  Report Type: Report from Study
  Country: US (occurrence: US)
  Receive Date: 20190325
  Receipt Date: 20190325
  Transmission Date: 20190418
  Serious: Yes (Death, Other)
  Sender: FDA-Public Use
  Company Number: US-GILEAD-2019-0398109

PATIENT
  Sex: Male

DRUGS (5)
  1. TRADJENTA [Concomitant]
     Active Substance: LINAGLIPTIN
  2. VALACICLOVIR [Concomitant]
     Active Substance: VALACYCLOVIR HYDROCHLORIDE
  3. DOXYCYCLINE. [Concomitant]
     Active Substance: DOXYCYCLINE
  4. IDELALISIB [Suspect]
     Active Substance: IDELALISIB
     Indication: B-CELL SMALL LYMPHOCYTIC LYMPHOMA
     Dosage: 150 MG, BID
     Route: 065
     Dates: start: 20180306
  5. BASAGLAR [Concomitant]
     Active Substance: INSULIN GLARGINE

REACTIONS (1)
  - Death [Fatal]
